FAERS Safety Report 8428793-7 (Version None)
Quarter: 2012Q2

REPORT INFORMATION
  Report Type: 
  Country: None (occurrence: None)
  Receive Date: 20120604
  Receipt Date: 20120525
  Transmission Date: 20120825
  Serious: Yes (Other)
  Sender: FDA-Public Use
  Company Number: DKLU1080539

PATIENT
  Age: 8 Year
  Sex: Male

DRUGS (4)
  1. GLUCOCORTICOIDS (GLUCOCORTICOIDS) [Suspect]
     Indication: ACUTE LYMPHOCYTIC LEUKAEMIA
  2. METHOTREXATE [Suspect]
     Indication: ACUTE LYMPHOCYTIC LEUKAEMIA
     Dosage: INTRATHECAL
     Route: 037
  3. TRIMETHOPRIM + SULFAMETHOXAZOLE [Suspect]
     Indication: ACUTE LYMPHOCYTIC LEUKAEMIA
  4. ELSPAR [Suspect]
     Indication: ACUTE LYMPHOCYTIC LEUKAEMIA

REACTIONS (1)
  - ENCEPHALOPATHY [None]
